FAERS Safety Report 8453090-3 (Version None)
Quarter: 2012Q2

REPORT INFORMATION
  Report Type: 
  Country: None (occurrence: None)
  Receive Date: 20120620
  Receipt Date: 20120507
  Transmission Date: 20120825
  Serious: No
  Sender: FDA-Public Use
  Company Number: US-VERTEX PHARMACEUTICALS INC.-AE-2012-006596

PATIENT
  Sex: Male
  Weight: 114.41 kg

DRUGS (3)
  1. PEGASYS [Concomitant]
     Indication: HEPATITIS C
     Route: 058
     Dates: start: 20120416
  2. INCIVEK [Suspect]
     Indication: HEPATITIS C
     Route: 048
     Dates: start: 20120416
  3. COPEGUS [Concomitant]
     Indication: HEPATITIS C
     Dates: start: 20120416

REACTIONS (5)
  - NAUSEA [None]
  - EYE PRURITUS [None]
  - MALAISE [None]
  - PRURITUS [None]
  - PARAESTHESIA [None]
